FAERS Safety Report 9259217 (Version 1)
Quarter: 2013Q2

REPORT INFORMATION
  Report Type: Spontaneous
  Country: US (occurrence: US)
  Receive Date: 20130426
  Receipt Date: 20130426
  Transmission Date: 20140414
  Serious: No
  Sender: FDA-Public Use
  Company Number: US-009507513-1304USA014824

PATIENT
  Sex: Female

DRUGS (2)
  1. MAXALT MLT [Suspect]
     Indication: HEADACHE
  2. IBUPROFEN [Concomitant]
     Indication: HEADACHE

REACTIONS (1)
  - Drug ineffective [Unknown]
